FAERS Safety Report 10660103 (Version 3)
Quarter: 2015Q1

REPORT INFORMATION
  Report Type: Report from Study
  Country: CA (occurrence: CA)
  Receive Date: 20141217
  Receipt Date: 20150319
  Transmission Date: 20150720
  Serious: Yes (Disabling)
  Sender: FDA-Public Use
  Company Number: CA-ABBVIE-14P-028-1321299-00

PATIENT
  Age: 67 Year
  Sex: Male
  Weight: 78.09 kg

DRUGS (3)
  1. VITAMIN D [Concomitant]
     Active Substance: CHOLECALCIFEROL
     Indication: HORMONE THERAPY
     Route: 048
     Dates: start: 20140616
  2. CALCIUM [Concomitant]
     Active Substance: CALCIUM
     Indication: HORMONE THERAPY
     Route: 048
     Dates: start: 20140616
  3. LUPRON DEPOT [Suspect]
     Active Substance: LEUPROLIDE ACETATE
     Indication: PROSTATE CANCER
     Route: 030
     Dates: start: 20140616

REACTIONS (4)
  - Abasia [Recovered/Resolved]
  - Musculoskeletal pain [Recovered/Resolved]
  - Injection site pain [Recovered/Resolved]
  - Hot flush [Unknown]

NARRATIVE: CASE EVENT DATE: 20140616
